FAERS Safety Report 24887029 (Version 1)
Quarter: 2025Q1

REPORT INFORMATION
  Report Type: Spontaneous
  Country: US (occurrence: US)
  Receive Date: 20250127
  Receipt Date: 20250127
  Transmission Date: 20250409
  Serious: No
  Sender: ROCHE
  Company Number: US-ROCHE-10000187329

PATIENT
  Age: 18 Year
  Sex: Male

DRUGS (1)
  1. HEMLIBRA [Suspect]
     Active Substance: EMICIZUMAB-KXWH
     Indication: Factor VII deficiency
     Dosage: DOSE- 210MG/1.4ML, STRENGTH- 105MG/0.7ML
     Route: 058
     Dates: start: 202303

REACTIONS (1)
  - Ear injury [Unknown]

NARRATIVE: CASE EVENT DATE: 20241226
